FAERS Safety Report 9311297 (Version 3)
Quarter: 2013Q3

REPORT INFORMATION
  Report Type: Spontaneous
  Country: US (occurrence: US)
  Receive Date: 20130528
  Receipt Date: 20130906
  Transmission Date: 20140515
  Serious: Yes (Hospitalization, Other)
  Sender: FDA-Public Use
  Company Number: US-ASTELLAS-2013US005414

PATIENT
  Age: 66 Year
  Sex: Female
  Weight: 70 kg

DRUGS (2)
  1. PROGRAF [Suspect]
     Indication: RENAL TRANSPLANT
     Dosage: 2 MG, BID
     Route: 048
     Dates: start: 20060708
  2. PROGRAF [Suspect]
     Dosage: 5 MG, Q12 HOURS
     Route: 048

REACTIONS (25)
  - Cardiac operation [Unknown]
  - Aortic valve stenosis [Unknown]
  - Mitral valve incompetence [Unknown]
  - Tricuspid valve incompetence [Unknown]
  - Coronary artery disease [Unknown]
  - Dyslipidaemia [Unknown]
  - Pulmonary hypertension [Unknown]
  - Cholecystectomy [Unknown]
  - Cardiac failure congestive [Recovering/Resolving]
  - Diabetes mellitus [Unknown]
  - Pneumonia [Recovering/Resolving]
  - Hypertension [Unknown]
  - Gastrooesophageal reflux disease [Unknown]
  - Vision blurred [Unknown]
  - Pyrexia [Recovering/Resolving]
  - Osteoarthritis [Unknown]
  - Diastolic dysfunction [Unknown]
  - Orthopnoea [Unknown]
  - Myalgia [Unknown]
  - Dry mouth [Unknown]
  - Ecchymosis [Unknown]
  - Oedema peripheral [Unknown]
  - Anaemia [Unknown]
  - Temperature intolerance [Unknown]
  - Blood creatinine abnormal [Recovering/Resolving]
